FAERS Safety Report 7548378-4 (Version None)
Quarter: 2011Q2

REPORT INFORMATION
  Report Type: 
  Country: None (occurrence: None)
  Receive Date: 20110615
  Receipt Date: 20110606
  Transmission Date: 20111010
  Serious: Yes (Hospitalization)
  Sender: FDA-Public Use
  Company Number: US-AMGEN-USASP2011029086

PATIENT
  Sex: Male

DRUGS (1)
  1. ARANESP [Suspect]
     Indication: THALASSAEMIA
     Dates: start: 20110516

REACTIONS (1)
  - MENTAL STATUS CHANGES [None]
